FAERS Safety Report 9764754 (Version 1)
Quarter: 2013Q4

REPORT INFORMATION
  Report Type: Spontaneous
  Country: US (occurrence: US)
  Receive Date: 20131217
  Receipt Date: 20131217
  Transmission Date: 20140711
  Serious: No
  Sender: FDA-Public Use
  Company Number: US-BIOGENIDEC-2013BI114396

PATIENT
  Age: 25 Year
  Sex: 0

DRUGS (5)
  1. TECFIDERA [Suspect]
     Indication: MULTIPLE SCLEROSIS
     Route: 048
     Dates: start: 20131111
  2. TECFIDERA [Suspect]
     Indication: MULTIPLE SCLEROSIS
     Route: 048
     Dates: start: 20131119
  3. GABAPENTIN [Concomitant]
  4. STRATTERA [Concomitant]
  5. ESCITALOPRAM [Concomitant]

REACTIONS (3)
  - Nausea [Recovered/Resolved]
  - Flushing [Not Recovered/Not Resolved]
  - Miliaria [Not Recovered/Not Resolved]
